FAERS Safety Report 4357829-8 (Version None)
Quarter: 2004Q2

REPORT INFORMATION
  Report Type: 
  Country: None (occurrence: None)
  Receive Date: 20040512
  Receipt Date: 20040427
  Transmission Date: 20050107
  Serious: Yes (Hospitalization)
  Sender: FDA-Public Use
  Company Number: US-JNJFOC-20040405971

PATIENT
  Age: 72 Year
  Sex: Female

DRUGS (13)
  1. INFLIXIMAB (INFLIXIMAB, RECOMBINANT) LYOPHILIZED POWDER [Suspect]
     Indication: RHEUMATOID ARTHRITIS
     Dosage: INTRAVENOUS
     Route: 042
     Dates: start: 20020219, end: 20020219
  2. INFLIXIMAB (INFLIXIMAB, RECOMBINANT) LYOPHILIZED POWDER [Suspect]
     Indication: RHEUMATOID ARTHRITIS
     Dosage: INTRAVENOUS
     Route: 042
     Dates: start: 20020701, end: 20020701
  3. METOPROLOL (METOPROLOL) [Concomitant]
  4. MYRALACT (MYRALACT) [Concomitant]
  5. IMDUR [Concomitant]
  6. ALBUTEROL [Concomitant]
  7. LOVASTATIN [Concomitant]
  8. REGLAN [Concomitant]
  9. FOLATE (FOLATE SODIUM) [Concomitant]
  10. ACIPHEX [Concomitant]
  11. ASPIRIN [Concomitant]
  12. PREDNISONE [Concomitant]
  13. METHOTREXATE [Concomitant]

REACTIONS (4)
  - CHRONIC OBSTRUCTIVE AIRWAYS DISEASE EXACERBATED [None]
  - FALL [None]
  - SYNCOPE [None]
  - VENTRICULAR HYPERTROPHY [None]
